FAERS Safety Report 24860585 (Version 1)
Quarter: 2025Q1

REPORT INFORMATION
  Report Type: Report from Study
  Country: US (occurrence: US)
  Receive Date: 20250120
  Receipt Date: 20250120
  Transmission Date: 20250408
  Serious: Yes (Other)
  Sender: CHEPLAPHARM
  Company Number: US-CHEPLA-2025000770

PATIENT
  Age: 63 Year
  Sex: Female

DRUGS (9)
  1. CAPECITABINE [Suspect]
     Active Substance: CAPECITABINE
     Indication: Thymoma
  2. CAPECITABINE [Suspect]
     Active Substance: CAPECITABINE
     Indication: Disease progression
  3. ATEZOLIZUMAB [Suspect]
     Active Substance: ATEZOLIZUMAB
     Indication: Thymoma
  4. CYCLOSPORINE [Suspect]
     Active Substance: CYCLOSPORINE
     Indication: Thymoma
     Dates: end: 202205
  5. CISPLATIN [Suspect]
     Active Substance: CISPLATIN
     Indication: Thymoma
  6. DOXORUBICIN [Suspect]
     Active Substance: DOXORUBICIN
     Indication: Thymoma
  7. CYCLOPHOSPHAMIDE [Suspect]
     Active Substance: CYCLOPHOSPHAMIDE
     Indication: Thymoma
  8. GEMCITABINE [Suspect]
     Active Substance: GEMCITABINE
     Indication: Thymoma
  9. GEMCITABINE [Suspect]
     Active Substance: GEMCITABINE
     Indication: Disease progression

REACTIONS (3)
  - Immune-mediated dermatitis [Unknown]
  - Blood disorder [Unknown]
  - Off label use [Unknown]
